FAERS Safety Report 9015977 (Version 1)
Quarter: 2013Q1

REPORT INFORMATION
  Report Type: Spontaneous
  Country: AT (occurrence: AT)
  Receive Date: 20130116
  Receipt Date: 20130116
  Transmission Date: 20140127
  Serious: Yes (Death, Other)
  Sender: FDA-Public Use
  Company Number: AT-INCYTE CORPORATION-2013IN000061

PATIENT
  Sex: Female

DRUGS (2)
  1. JAKAVI [Suspect]
     Indication: CHRONIC MYELOMONOCYTIC LEUKAEMIA
     Dosage: UNKNOWN
     Route: 065
  2. VIDAZA [Suspect]
     Indication: CHRONIC MYELOID LEUKAEMIA
     Dosage: UNKNOWN
     Route: 065

REACTIONS (2)
  - Death [Fatal]
  - Chronic myeloid leukaemia [Unknown]
